FAERS Safety Report 10290680 (Version 1)
Quarter: 2014Q3

REPORT INFORMATION
  Report Type: Spontaneous
  Country: US (occurrence: None)
  Receive Date: 20140708
  Receipt Date: 20140708
  Transmission Date: 20150326
  Serious: Yes (Death)
  Sender: FDA-Public Use
  Company Number: None

PATIENT
  Age: 87 Year
  Sex: Female
  Weight: 43.09 kg

DRUGS (1)
  1. PLAVIX [Suspect]
     Active Substance: CLOPIDOGREL BISULFATE
     Indication: PERIPHERAL ARTERIAL OCCLUSIVE DISEASE
     Dosage: 1 TABLET  ONCE DAILY  TAKEN BY MOUTH
     Route: 048
     Dates: start: 20130529, end: 20131022

REACTIONS (7)
  - Myocardial infarction [None]
  - Epistaxis [None]
  - Speech disorder [None]
  - Dysphagia [None]
  - Thrombosis [None]
  - Contusion [None]
  - Cerebrovascular accident [None]

NARRATIVE: CASE EVENT DATE: 20131022
